FAERS Safety Report 7882616 (Version 4)
Quarter: 2014Q3

REPORT INFORMATION
  Report Type: Report from Study
  Country: US (occurrence: US)
  Receive Date: 20110404
  Receipt Date: 20140804
  Transmission Date: 20150326
  Serious: Yes (Hospitalization)
  Sender: FDA-Public Use
  Company Number: US-BIOGENIDEC-2011BI011582

PATIENT
  Age: 53 Year
  Sex: Female

DRUGS (6)
  1. WELLBUTRIN [Concomitant]
     Active Substance: BUPROPION HYDROCHLORIDE
  2. ATIVAN [Concomitant]
     Active Substance: LORAZEPAM
  3. COUMADIN [Concomitant]
     Active Substance: WARFARIN SODIUM
  4. CARDIZEN CD [Concomitant]
  5. AVONEX [Suspect]
     Active Substance: INTERFERON BETA-1A
     Indication: MULTIPLE SCLEROSIS
     Route: 030
     Dates: start: 20071123, end: 20140701
  6. LOVENOX [Concomitant]
     Active Substance: ENOXAPARIN SODIUM

REACTIONS (2)
  - Cerebrovascular accident [Recovered/Resolved]
  - Hypercoagulation [Recovered/Resolved]

NARRATIVE: CASE EVENT DATE: 20110321
